FAERS Safety Report 24671072 (Version 1)
Quarter: 2024Q4

REPORT INFORMATION
  Report Type: Spontaneous
  Country: US (occurrence: US)
  Receive Date: 20241127
  Receipt Date: 20241127
  Transmission Date: 20250115
  Serious: No
  Sender: ABBVIE
  Company Number: US-ABBVIE-6021769

PATIENT
  Age: 69 Year
  Sex: Female

DRUGS (1)
  1. REFRESH TEARS PF [Suspect]
     Active Substance: CARBOXYMETHYLCELLULOSE SODIUM\GLYCERIN
     Indication: Product used for unknown indication
     Dosage: CMC 0.5% AND GLYCERIN 0.9%?DOSAGE: 10ML
     Route: 047

REACTIONS (2)
  - Vision blurred [Recovered/Resolved]
  - Product odour abnormal [Not Recovered/Not Resolved]

NARRATIVE: CASE EVENT DATE: 20241101
